FAERS Safety Report 9324649 (Version 3)
Quarter: 2013Q2

REPORT INFORMATION
  Report Type: Spontaneous
  Country: AT (occurrence: AT)
  Receive Date: 20130603
  Receipt Date: 20130627
  Transmission Date: 20140414
  Serious: Yes (Hospitalization, Other)
  Sender: FDA-Public Use
  Company Number: AT-ABBOTT-13P-009-1097730-00

PATIENT
  Sex: Female
  Weight: 74 kg

DRUGS (7)
  1. HUMIRA [Suspect]
     Indication: CROHN^S DISEASE
     Dates: start: 20110801, end: 20130304
  2. HYPREN PLUS [Concomitant]
     Indication: PRODUCT USED FOR UNKNOWN INDICATION
  3. IMUREK [Concomitant]
     Indication: PRODUCT USED FOR UNKNOWN INDICATION
  4. CIPROXIN [Concomitant]
     Indication: PRODUCT USED FOR UNKNOWN INDICATION
  5. ANAEROBEX [Concomitant]
     Indication: PRODUCT USED FOR UNKNOWN INDICATION
  6. APREDNISOLON [Concomitant]
     Indication: PRODUCT USED FOR UNKNOWN INDICATION
  7. PANTOPRAZOL [Concomitant]
     Indication: PRODUCT USED FOR UNKNOWN INDICATION

REACTIONS (2)
  - Colonic fistula [Recovered/Resolved]
  - Crohn^s disease [Not Recovered/Not Resolved]
